FAERS Safety Report 22712197 (Version 2)
Quarter: 2024Q1

REPORT INFORMATION
  Report Type: Report from Study
  Country: EG (occurrence: EG)
  Receive Date: 20230717
  Receipt Date: 20240312
  Transmission Date: 20240409
  Serious: Yes (Disabling, Other)
  Sender: FDA-Public Use
  Company Number: EG-002147023-NVSC2023EG157008

PATIENT
  Age: 43 Year
  Sex: Male

DRUGS (1)
  1. GILENYA [Suspect]
     Active Substance: FINGOLIMOD HYDROCHLORIDE
     Indication: Multiple sclerosis
     Dosage: 1 DOSAGE FORM, QD
     Route: 048
     Dates: start: 20220227, end: 202211

REACTIONS (12)
  - Abdominal pain upper [Recovering/Resolving]
  - Headache [Recovering/Resolving]
  - Renal impairment [Recovering/Resolving]
  - Blood thyroid stimulating hormone decreased [Unknown]
  - Disturbance in attention [Not Recovered/Not Resolved]
  - Fatigue [Recovering/Resolving]
  - Lymphocyte count decreased [Recovering/Resolving]
  - Blood pressure increased [Unknown]
  - Hepatic enzyme increased [Recovering/Resolving]
  - Gait disturbance [Not Recovered/Not Resolved]
  - Product dispensing issue [Unknown]
  - Blood glucose abnormal [Recovered/Resolved]

NARRATIVE: CASE EVENT DATE: 20221101
